FAERS Safety Report 4654114-1 (Version None)
Quarter: 2005Q2

REPORT INFORMATION
  Report Type: 
  Country: None (occurrence: None)
  Receive Date: 20050504
  Receipt Date: 20041129
  Transmission Date: 20051028
  Serious: Yes (Hospitalization)
  Sender: FDA-Public Use
  Company Number: 800206

PATIENT
  Age: 72 Year
  Sex: Male
  Weight: 68.7 kg

DRUGS (16)
  1. EXTRANEAL [Suspect]
     Indication: PERITONEAL DIALYSIS
     Dosage: 2000 ML;QD;INTRAPERITONEAL
     Route: 033
     Dates: start: 20040430, end: 20041005
  2. DIANEAL [Concomitant]
  3. AMLODIPINE BESYLATE [Concomitant]
  4. DOXAZOSIN MESYLATE [Concomitant]
  5. BLOPRESS [Concomitant]
  6. IMIDAPRIL HYDROCHLORIDE [Concomitant]
  7. POLYCARBOPHIL CALCIUM [Concomitant]
  8. ALOSENN [Concomitant]
  9. FUROSEMIDE [Concomitant]
  10. TRIMEBUTINE MALEATE [Concomitant]
  11. GLIBENCLAMIDE [Concomitant]
  12. ALTAT [Concomitant]
  13. CALCIUM CARBONATE [Concomitant]
  14. EBASTINE [Concomitant]
  15. EPOGIN [Concomitant]
  16. FERROUS SULFATE TAB [Concomitant]

REACTIONS (3)
  - CATHETER RELATED INFECTION [None]
  - DEMENTIA [None]
  - HAEMODIALYSIS [None]
